FAERS Safety Report 6199509-2 (Version None)
Quarter: 2009Q2

REPORT INFORMATION
  Report Type: 
  Country: None (occurrence: None)
  Receive Date: 20090520
  Receipt Date: 20090520
  Transmission Date: 20091009
  Serious: Yes (Other)
  Sender: FDA-Public Use
  Company Number: None

PATIENT
  Sex: Female
  Weight: 61.2356 kg

DRUGS (1)
  1. SIMVASTATIN [Suspect]
     Dosage: 1 DAILY ORALLY
     Route: 048
     Dates: start: 19990101, end: 20090101

REACTIONS (2)
  - INSOMNIA [None]
  - PAIN IN EXTREMITY [None]
